FAERS Safety Report 8556393-7 (Version None)
Quarter: 2012Q3

REPORT INFORMATION
  Report Type: 
  Country: None (occurrence: None)
  Receive Date: 20120801
  Receipt Date: 20120725
  Transmission Date: 20120928
  Serious: Yes (Hospitalization)
  Sender: FDA-Public Use
  Company Number: PHHY2012BR064333

PATIENT
  Sex: Female
  Weight: 64 kg

DRUGS (2)
  1. PREDNISONE [Concomitant]
     Indication: OSTEOARTHRITIS
     Dosage: 1 DF DAILY
     Route: 048
  2. SANDOSTATIN LAR [Suspect]
     Indication: ACROMEGALY
     Dosage: 10 MG (1 AMPOULE OF 10ML), QMO

REACTIONS (8)
  - ASTHENIA [None]
  - GAIT DISTURBANCE [None]
  - ANAEMIA [None]
  - OSTEOARTHRITIS [None]
  - OEDEMA PERIPHERAL [None]
  - THROMBOSIS [None]
  - PALLOR [None]
  - FATIGUE [None]
